FAERS Safety Report 4553848-7 (Version None)
Quarter: 2005Q1

REPORT INFORMATION
  Report Type: 
  Country: None (occurrence: None)
  Receive Date: 20050110
  Receipt Date: 20050110
  Transmission Date: 20050727
  Serious: Yes (Disabling)
  Sender: FDA-Public Use
  Company Number: None

PATIENT
  Sex: Female
  Weight: 65.7716 kg

DRUGS (1)
  1. PAXIL CR [Suspect]
     Indication: STRESS
     Dosage: 1  DAY  ORAL
     Route: 048
     Dates: start: 20050106, end: 20050106

REACTIONS (6)
  - CONDUCTION DISORDER [None]
  - DEPRESSED MOOD [None]
  - DRUG WITHDRAWAL SYNDROME [None]
  - FEAR [None]
  - MUSCLE SPASMS [None]
  - NERVOUS SYSTEM DISORDER [None]
